FAERS Safety Report 9450580 (Version 1)
Quarter: 2013Q3

REPORT INFORMATION
  Report Type: Spontaneous
  Country: GB (occurrence: GB)
  Receive Date: 20130809
  Receipt Date: 20130809
  Transmission Date: 20140515
  Serious: Yes (Other)
  Sender: FDA-Public Use
  Company Number: GB-GLAXOSMITHKLINE-B0912811A

PATIENT
  Age: 15 Year
  Sex: Female
  Weight: 22 kg

DRUGS (6)
  1. DUAC [Suspect]
     Dates: start: 20130722
  2. OXYTETRACYCLINE [Concomitant]
     Dates: start: 20130429, end: 20130506
  3. OXYTETRACYCLINE [Concomitant]
     Dates: start: 20130530, end: 20130606
  4. ADAPALENE [Concomitant]
     Dates: start: 20130619, end: 20130620
  5. BENZOYL PEROXIDE [Concomitant]
     Dates: start: 20130619, end: 20130620
  6. LYMECYCLINE [Concomitant]
     Dates: start: 20130619, end: 20130620

REACTIONS (2)
  - Skin burning sensation [Recovered/Resolved]
  - Lip swelling [Recovered/Resolved]
